FAERS Safety Report 17815253 (Version 1)
Quarter: 2020Q2

REPORT INFORMATION
  Report Type: Spontaneous
  Country: US (occurrence: US)
  Receive Date: 20200522
  Receipt Date: 20200522
  Transmission Date: 20200714
  Serious: Yes (Death)
  Sender: FDA-Public Use
  Company Number: US-TEVA-2020-US-1239009

PATIENT
  Sex: Female

DRUGS (24)
  1. CHLORHEX [Concomitant]
     Active Substance: CHLORHEXIDINE GLUCONATE
  2. ONE-A-DAY [Concomitant]
     Active Substance: VITAMINS
  3. VITAMIN D [Concomitant]
     Active Substance: VITAMIN D NOS
  4. ZOLOFT [Concomitant]
     Active Substance: SERTRALINE HYDROCHLORIDE
  5. AMLODIPINE [Concomitant]
     Active Substance: AMLODIPINE BESYLATE
  6. CALCIUM [Concomitant]
     Active Substance: CALCIUM
  7. LANSOPRAZOLE. [Concomitant]
     Active Substance: LANSOPRAZOLE
  8. PREDNISONE. [Concomitant]
     Active Substance: PREDNISONE
  9. BACLOFEN. [Concomitant]
     Active Substance: BACLOFEN
  10. CARBAMAZEPIN [Concomitant]
     Active Substance: CARBAMAZEPINE
  11. GABAPENTIN. [Concomitant]
     Active Substance: GABAPENTIN
  12. EMGALITY [Concomitant]
     Active Substance: GALCANEZUMAB-GNLM
  13. BUPROPION. [Concomitant]
     Active Substance: BUPROPION
  14. LISINOPRIL. [Concomitant]
     Active Substance: LISINOPRIL
  15. METFORMIN [Concomitant]
     Active Substance: METFORMIN HYDROCHLORIDE
  16. MODAFINIL. [Concomitant]
     Active Substance: MODAFINIL
  17. NITROFURANTN [Concomitant]
     Active Substance: NITROFURANTOIN
  18. REBIF [Concomitant]
     Active Substance: INTERFERON BETA-1A
  19. SERTRALINE [Concomitant]
     Active Substance: SERTRALINE HYDROCHLORIDE
  20. TIZANIDINE. [Concomitant]
     Active Substance: TIZANIDINE
  21. ATORVASTATIN [Concomitant]
     Active Substance: ATORVASTATIN
  22. COPAXONE [Suspect]
     Active Substance: GLATIRAMER ACETATE
     Indication: MULTIPLE SCLEROSIS
     Dosage: 20 MILLIGRAM/MILLILITERS DAILY;
     Route: 058
     Dates: start: 20191227
  23. CLINDAMYCIN. [Concomitant]
     Active Substance: CLINDAMYCIN
  24. FENOFIBRATE. [Concomitant]
     Active Substance: FENOFIBRATE

REACTIONS (1)
  - Death [Fatal]
